FAERS Safety Report 5290073-9 (Version None)
Quarter: 2007Q1

REPORT INFORMATION
  Report Type: 
  Country: None (occurrence: None)
  Receive Date: 20070330
  Receipt Date: 20070323
  Transmission Date: 20070707
  Serious: Yes (Other)
  Sender: FDA-Public Use
  Company Number: 2007BL000958

PATIENT
  Age: 86 Year
  Sex: Male

DRUGS (4)
  1. PREDNISOLONE SODIUM PHOSPHATE [Suspect]
     Indication: NON-HODGKIN'S LYMPHOMA
     Dosage: 1 CYCLE
  2. DOXORUBICIN HCL [Suspect]
     Indication: NON-HODGKIN'S LYMPHOMA
     Dosage: 82 MILLIGRAMS;1 CYCLE;
  3. CYCLOPHOSPHAMIDE [Suspect]
     Indication: NON-HODGKIN'S LYMPHOMA
     Dosage: 1 CYCLE
  4. VINCRISTINE [Suspect]
     Indication: NON-HODGKIN'S LYMPHOMA
     Dosage: 1 CYCLE

REACTIONS (2)
  - ATRIAL FIBRILLATION [None]
  - CARDIAC FAILURE [None]
